FAERS Safety Report 7493538-4 (Version None)
Quarter: 2011Q2

REPORT INFORMATION
  Report Type: 
  Country: None (occurrence: None)
  Receive Date: 20110520
  Receipt Date: 20110518
  Transmission Date: 20111010
  Serious: Yes (Hospitalization, Other)
  Sender: FDA-Public Use
  Company Number: CHPA2011US06890

PATIENT
  Age: 83 Year
  Sex: Male

DRUGS (1)
  1. FERROUS SULFATE TAB [Suspect]
     Indication: IRON DEFICIENCY
     Dosage: 1 DF, QD
     Route: 048

REACTIONS (3)
  - MEDICATION RESIDUE [None]
  - JOINT INJURY [None]
  - FALL [None]
